FAERS Safety Report 8941643 (Version 1)
Quarter: 2012Q4

REPORT INFORMATION
  Report Type: 
  Country: DE (occurrence: DE)
  Receive Date: 20121203
  Receipt Date: 20121203
  Transmission Date: 20130627
  Serious: Yes (Hospitalization)
  Sender: FDA-Public Use
  Company Number: DE-ASTRAZENECA-2012SE90296

PATIENT
  Age: 2 Month
  Sex: Male

DRUGS (3)
  1. SYNAGIS [Suspect]
     Indication: ANTIVIRAL PROPHYLAXIS
     Route: 030
     Dates: start: 20121108
  2. INFANRIX [Suspect]
     Indication: IMMUNISATION
     Route: 030
     Dates: start: 20121106
  3. PREVENAR [Suspect]
     Indication: IMMUNISATION
     Route: 030
     Dates: start: 20121106

REACTIONS (3)
  - Apnoea [Recovered/Resolved]
  - Sick sinus syndrome [Recovered/Resolved]
  - Oxygen saturation decreased [Recovered/Resolved]
